FAERS Safety Report 18469325 (Version 2)
Quarter: 2022Q1

REPORT INFORMATION
  Report Type: Spontaneous
  Country: CA (occurrence: None)
  Receive Date: 20201105
  Receipt Date: 20220112
  Transmission Date: 20220424
  Serious: Yes (Other)
  Sender: FDA-Public Use
  Company Number: 2020SF42122

PATIENT
  Age: 50 Year
  Sex: Female
  Weight: 110 kg

DRUGS (18)
  1. ESOMEPRAZOLE [Suspect]
     Active Substance: ESOMEPRAZOLE
     Route: 065
  2. ASPIRIN [Suspect]
     Active Substance: ASPIRIN
     Route: 065
  3. CETIRIZINE [Suspect]
     Active Substance: CETIRIZINE HYDROCHLORIDE
     Dosage: 20.0MG UNKNOWN
     Route: 048
  4. DIPHENHYDRAMINE HYDROCHLORIDE [Suspect]
     Active Substance: DIPHENHYDRAMINE HYDROCHLORIDE
     Route: 065
  5. ENBREL [Suspect]
     Active Substance: ETANERCEPT
     Route: 058
  6. CETIRIZINE HYDROCHLORIDE\PSEUDOEPHEDRINE HYDROCHLORIDE [Suspect]
     Active Substance: CETIRIZINE HYDROCHLORIDE\PSEUDOEPHEDRINE HYDROCHLORIDE
     Route: 065
  7. RITUXIMAB [Suspect]
     Active Substance: RITUXIMAB
     Dosage: 1000.0MG UNKNOWN
     Route: 042
  8. ASPIRIN [Suspect]
     Active Substance: ASPIRIN
     Dosage: UNKNOWN
     Route: 065
  9. ATENOLOL [Concomitant]
     Active Substance: ATENOLOL
     Route: 065
  10. ACETAMINOPHEN [Concomitant]
     Active Substance: ACETAMINOPHEN
     Dosage: 650.0MG UNKNOWN
     Route: 048
  11. CETIRIZINE HYDROCHLORIDE [Concomitant]
     Active Substance: CETIRIZINE HYDROCHLORIDE
     Dosage: 20.0MG UNKNOWN
     Route: 048
  12. CYMBALTA [Concomitant]
     Active Substance: DULOXETINE HYDROCHLORIDE
     Route: 065
  13. MEDROL [Concomitant]
     Active Substance: METHYLPREDNISOLONE
     Route: 065
  14. MEDROL [Concomitant]
     Active Substance: METHYLPREDNISOLONE
     Dosage: 100.0MG UNKNOWN
     Route: 042
  15. PREVACID [Concomitant]
     Active Substance: LANSOPRAZOLE
     Route: 065
  16. VITAMIN E [Concomitant]
     Active Substance: .ALPHA.-TOCOPHEROL
     Route: 065
  17. ZOPICLONE [Concomitant]
     Active Substance: ZOPICLONE
     Route: 065
  18. D-APLHA TOCOPHERYL ACETATE [Concomitant]

REACTIONS (31)
  - Adrenal insufficiency [Not Recovered/Not Resolved]
  - Arthralgia [Not Recovered/Not Resolved]
  - Balance disorder [Not Recovered/Not Resolved]
  - Cognitive disorder [Not Recovered/Not Resolved]
  - Coordination abnormal [Not Recovered/Not Resolved]
  - Cough [Not Recovered/Not Resolved]
  - Demyelination [Not Recovered/Not Resolved]
  - Depressed mood [Not Recovered/Not Resolved]
  - Depression [Not Recovered/Not Resolved]
  - Dizziness [Not Recovered/Not Resolved]
  - Drug ineffective [Not Recovered/Not Resolved]
  - Dry mouth [Not Recovered/Not Resolved]
  - Dysphagia [Not Recovered/Not Resolved]
  - Electric shock [Not Recovered/Not Resolved]
  - Fatigue [Not Recovered/Not Resolved]
  - Hyperhidrosis [Not Recovered/Not Resolved]
  - Hypotension [Not Recovered/Not Resolved]
  - Infusion related reaction [Not Recovered/Not Resolved]
  - Intervertebral discitis [Not Recovered/Not Resolved]
  - Multiple sclerosis [Not Recovered/Not Resolved]
  - Nausea [Not Recovered/Not Resolved]
  - Neuropathy peripheral [Not Recovered/Not Resolved]
  - Pain [Not Recovered/Not Resolved]
  - Post-traumatic stress disorder [Not Recovered/Not Resolved]
  - Progressive multifocal leukoencephalopathy [Not Recovered/Not Resolved]
  - Rheumatoid arthritis [Not Recovered/Not Resolved]
  - Syncope [Not Recovered/Not Resolved]
  - Temperature intolerance [Not Recovered/Not Resolved]
  - Throat irritation [Not Recovered/Not Resolved]
  - Ulcer [Not Recovered/Not Resolved]
  - Urticaria [Not Recovered/Not Resolved]
